FAERS Safety Report 6139487-5 (Version None)
Quarter: 2009Q1

REPORT INFORMATION
  Report Type: 
  Country: None (occurrence: None)
  Receive Date: 20090324
  Receipt Date: 20090320
  Transmission Date: 20090719
  Serious: Yes (Hospitalization, Disabling)
  Sender: FDA-Public Use
  Company Number: US-1169030

PATIENT
  Age: 57 Year
  Sex: Female

DRUGS (1)
  1. PREDNISOLONE ACETATE [Suspect]
     Indication: UVEITIS
     Dosage: (1 GTT OU  QID OPHTHALMIC)
     Route: 047
     Dates: start: 20030101, end: 20070301

REACTIONS (7)
  - BLINDNESS [None]
  - DECUBITUS ULCER [None]
  - DEMENTIA [None]
  - DIABETES MELLITUS [None]
  - HYPERTENSION [None]
  - MUSCLE CONTRACTURE [None]
  - WEIGHT DECREASED [None]
